FAERS Safety Report 6667442-5 (Version None)
Quarter: 2010Q2

REPORT INFORMATION
  Report Type: 
  Country: None (occurrence: None)
  Receive Date: 20100405
  Receipt Date: 20100329
  Transmission Date: 20101027
  Serious: Yes (Death, Hospitalization, Other)
  Sender: FDA-Public Use
  Company Number: US-ROCHE-681129

PATIENT
  Sex: Male
  Weight: 96 kg

DRUGS (22)
  1. BEVACIZUMAB [Suspect]
     Indication: GLIOBLASTOMA MULTIFORME
     Dosage: FREQUENCY REPORTED AS Q 14 DAYS (DAYS 1 AND 5/28 DAY CYCLE)
     Route: 042
  2. BEVACIZUMAB [Suspect]
     Route: 042
     Dates: start: 20091116
  3. BEVACIZUMAB [Suspect]
     Route: 042
     Dates: start: 20091130
  4. BEVACIZUMAB [Suspect]
     Route: 042
     Dates: start: 20091214
  5. BEVACIZUMAB [Suspect]
     Dosage: FREQUENCY: ONCE EVERY 14 DAYS
     Route: 042
     Dates: end: 20100125
  6. TEMODAR [Suspect]
     Indication: GLIOBLASTOMA MULTIFORME
     Dosage: FREQUENCY REPORTED AS QDX 5 DAYS (DAYS 1-5 AND 15-19/28 DAY CYCLE)
     Route: 048
     Dates: start: 20090404
  7. TEMODAR [Suspect]
     Route: 048
     Dates: start: 20090616, end: 20091017
  8. TEMODAR [Suspect]
     Dosage: REPORTED FREQUENCY: QDX5 EVERY 14 DAYS
     Route: 048
     Dates: start: 20091116
  9. TEMODAR [Suspect]
     Dosage: FREQUENCY REPORTED AS QDX 5 DAYS (DAYS 1-5 AND 15-19/28 DAY CYCLE)
     Route: 048
     Dates: start: 20091125, end: 20091130
  10. TEMODAR [Suspect]
     Dosage: REPORTED FREQUENCY: QDX5 EVERY 14 DAYS
     Route: 048
     Dates: end: 20100129
  11. NPH INSULIN [Concomitant]
     Dosage: DRUG NAME REPORTED AS INSULIN NPH SLIDING SCALE
  12. INSULIN LENTE [Concomitant]
     Dosage: DRUG NAME REPORTED AS INSULIN LENTIS 28 U BID, DOSE: 28 U
  13. GLIPIZIDE [Concomitant]
     Dosage: DOSE: 10 MG AM AND 5 MG PM
  14. KLONOPIN [Concomitant]
  15. DILANTIN [Concomitant]
  16. KEPPRA [Concomitant]
  17. OMEPRAZOLE [Concomitant]
  18. DECADRON [Concomitant]
  19. DECADRON [Concomitant]
  20. DECADRON [Concomitant]
  21. TYLENOL-500 [Concomitant]
  22. IBUPROFEN [Concomitant]

REACTIONS (4)
  - CEREBRAL HAEMORRHAGE [None]
  - CONVULSION [None]
  - DEEP VEIN THROMBOSIS [None]
  - ENCEPHALOPATHY [None]
